FAERS Safety Report 17843369 (Version 1)
Quarter: 2020Q2

REPORT INFORMATION
  Report Type: Spontaneous
  Country: CA (occurrence: CA)
  Receive Date: 20200530
  Receipt Date: 20200530
  Transmission Date: 20200714
  Serious: Yes (Hospitalization, Other)
  Sender: FDA-Public Use
  Company Number: CA-TEVA-2020-CA-1241217

PATIENT
  Age: 2 Decade
  Sex: Female

DRUGS (1)
  1. FENTANYL. [Suspect]
     Active Substance: FENTANYL
     Indication: PRODUCT USED FOR UNKNOWN INDICATION
     Route: 065

REACTIONS (12)
  - Drug withdrawal syndrome [Recovered/Resolved]
  - Muscle twitching [Recovered/Resolved]
  - Overdose [Recovered/Resolved]
  - Drug dependence [Recovered/Resolved]
  - Drug diversion [Recovered/Resolved]
  - Insomnia [Recovered/Resolved]
  - Abdominal pain upper [Recovered/Resolved]
  - Vomiting [Recovered/Resolved]
  - Hypoaesthesia [Recovered/Resolved]
  - Loss of consciousness [Recovered/Resolved]
  - Pain [Recovered/Resolved]
  - Psychomotor hyperactivity [Recovered/Resolved]
